FAERS Safety Report 5846587-3 (Version None)
Quarter: 2008Q3

REPORT INFORMATION
  Report Type: 
  Country: None (occurrence: None)
  Receive Date: 20080815
  Receipt Date: 20080804
  Transmission Date: 20090109
  Serious: Yes (Hospitalization)
  Sender: FDA-Public Use
  Company Number: FR-ELI_LILLY_AND_COMPANY-FR200808000422

PATIENT
  Age: 44 Year
  Sex: Female

DRUGS (5)
  1. GEMZAR [Suspect]
     Indication: HODGKIN'S DISEASE
     Dosage: UNK, UNK
     Route: 042
     Dates: start: 20080326, end: 20080611
  2. DOXORUBICIN HCL [Concomitant]
     Indication: HODGKIN'S DISEASE
     Dosage: UNK, UNK
     Route: 042
     Dates: start: 20080323, end: 20080611
  3. SKENAN [Concomitant]
     Dosage: UNK, UNK
     Route: 065
  4. MORPHINE [Concomitant]
     Dosage: UNK, UNK
     Route: 065
  5. ROCEPHIN [Concomitant]
     Dosage: UNK, UNK
     Route: 065

REACTIONS (1)
  - DERMATOSIS [None]
